FAERS Safety Report 9170682 (Version 1)
Quarter: 2013Q1

REPORT INFORMATION
  Report Type: Spontaneous
  Country: US (occurrence: None)
  Receive Date: 20130308
  Receipt Date: 20130308
  Transmission Date: 20140127
  Serious: Yes (Other)
  Sender: FDA-Public Use
  Company Number: UTC-029865

PATIENT
  Sex: Female

DRUGS (2)
  1. TYVASO [Suspect]
     Indication: PULMONARY HYPERTENSION
     Route: 055
  2. LETAIRIS (AMBRISENTAN) (10 MILLIGRAM, TABLET) (AMBRISENTAN) [Suspect]
     Indication: PULMONARY HYPERTENSION
     Route: 048
     Dates: start: 20100716

REACTIONS (2)
  - Cardiac failure [None]
  - Drug ineffective [None]
